FAERS Safety Report 16731665 (Version 2)
Quarter: 2019Q3

REPORT INFORMATION
  Report Type: Spontaneous
  Country: US (occurrence: US)
  Receive Date: 20190822
  Receipt Date: 20190830
  Transmission Date: 20191005
  Serious: No
  Sender: FDA-Public Use
  Company Number: US-SA-2019SA229157

PATIENT
  Age: 51 Year
  Sex: Female

DRUGS (1)
  1. ALLEGRA-D 24 HOUR [Suspect]
     Active Substance: FEXOFENADINE HYDROCHLORIDE\PSEUDOEPHEDRINE HYDROCHLORIDE
     Indication: URTICARIA
     Dosage: 180 MG, QD
     Route: 065

REACTIONS (8)
  - Weight decreased [Recovering/Resolving]
  - Muscle spasms [Recovering/Resolving]
  - Sleep disorder [Recovering/Resolving]
  - Nausea [Recovering/Resolving]
  - Abdominal discomfort [Recovering/Resolving]
  - Fatigue [Recovering/Resolving]
  - Impaired work ability [Recovering/Resolving]
  - Vomiting [Recovering/Resolving]
